FAERS Safety Report 20716900 (Version 3)
Quarter: 2022Q3

REPORT INFORMATION
  Report Type: Spontaneous
  Country: US (occurrence: US)
  Receive Date: 20220416
  Receipt Date: 20220716
  Transmission Date: 20221026
  Serious: Yes (Life-Threatening, Hospitalization, Other)
  Sender: FDA-Public Use
  Company Number: US-JNJFOC-20220427611

PATIENT
  Age: 70 Year
  Sex: Male

DRUGS (4)
  1. ZYTIGA [Suspect]
     Active Substance: ABIRATERONE ACETATE
     Indication: Product used for unknown indication
     Dosage: 2 TABLETS BY MOUTH DAILY
     Route: 048
     Dates: start: 20180901
  2. AMIODARONE [Suspect]
     Active Substance: AMIODARONE
     Indication: Ventricular tachycardia
     Dosage: APPROXIMATE TOTAL NUMBER OF DOSES/INFUSIONS PATIENT RECEIVED: 10 G?ROUTE: IV/PO
     Route: 042
     Dates: start: 20220403, end: 20220415
  3. ASPIRIN [Concomitant]
     Active Substance: ASPIRIN
     Indication: Product used for unknown indication
     Route: 065
  4. METOPROLOL [Concomitant]
     Active Substance: METOPROLOL
     Indication: Product used for unknown indication
     Route: 065

REACTIONS (3)
  - Acute lung injury [Recovered/Resolved with Sequelae]
  - Respiratory failure [Unknown]
  - Atrial fibrillation [Recovered/Resolved with Sequelae]

NARRATIVE: CASE EVENT DATE: 20220328
